FAERS Safety Report 6751592-9 (Version None)
Quarter: 2010Q2

REPORT INFORMATION
  Report Type: 
  Country: None (occurrence: None)
  Receive Date: 20100602
  Receipt Date: 20100526
  Transmission Date: 20101027
  Serious: Yes (Other)
  Sender: FDA-Public Use
  Company Number: RU-ROCHE-705943

PATIENT
  Age: 63 Year
  Sex: Male

DRUGS (2)
  1. AVASTIN [Suspect]
     Route: 042
     Dates: start: 20100301, end: 20100401
  2. XELODA [Suspect]
     Route: 048
     Dates: start: 20100301

REACTIONS (1)
  - TRANSAMINASES INCREASED [None]
